FAERS Safety Report 8434872-0 (Version None)
Quarter: 2012Q2

REPORT INFORMATION
  Report Type: 
  Country: None (occurrence: None)
  Receive Date: 20120608
  Receipt Date: 20120531
  Transmission Date: 20120825
  Serious: Yes (Other)
  Sender: FDA-Public Use
  Company Number: FK201201518

PATIENT
  Age: 55 Year
  Sex: Male

DRUGS (3)
  1. MANNITOL [Suspect]
     Indication: SCAN WITH CONTRAST
     Dosage: 400 ML, ORAL
     Route: 048
  2. ULTRAVIST 150 [Suspect]
     Indication: SCAN WITH CONTRAST
     Dosage: 90 ML
  3. IOPAMIDOL [Concomitant]

REACTIONS (3)
  - ANAPHYLACTIC REACTION [None]
  - DIARRHOEA [None]
  - SMALL BOWEL ANGIOEDEMA [None]
